FAERS Safety Report 9427204 (Version 1)
Quarter: 2013Q3

REPORT INFORMATION
  Report Type: Spontaneous
  Country: US (occurrence: US)
  Receive Date: 20130730
  Receipt Date: 20130730
  Transmission Date: 20140515
  Serious: No
  Sender: FDA-Public Use
  Company Number: US-ABBOTT-12P-163-0967306-00

PATIENT
  Age: 57 Year
  Sex: Male
  Weight: 164.35 kg

DRUGS (6)
  1. NIASPAN (COATED) 500MG [Suspect]
     Indication: HIGH DENSITY LIPOPROTEIN DECREASED
  2. WARFARIN [Concomitant]
     Indication: PRODUCT USED FOR UNKNOWN INDICATION
  3. BYSTOLIC [Concomitant]
     Indication: HYPERTENSION
  4. METRACOLE [Concomitant]
     Indication: IRRITABLE BOWEL SYNDROME
  5. DICYCLOMINE [Concomitant]
     Indication: IRRITABLE BOWEL SYNDROME
  6. FUROSEMIDE [Concomitant]
     Indication: FLUID RETENTION

REACTIONS (2)
  - Nausea [Not Recovered/Not Resolved]
  - Dizziness [Not Recovered/Not Resolved]
